FAERS Safety Report 9717168 (Version 1)
Quarter: 2013Q4

REPORT INFORMATION
  Report Type: Spontaneous
  Country: CN (occurrence: CN)
  Receive Date: 20131127
  Receipt Date: 20131127
  Transmission Date: 20140711
  Serious: Yes (Other)
  Sender: FDA-Public Use
  Company Number: CN-JNJFOC-20131113531

PATIENT
  Sex: 0

DRUGS (2)
  1. INFLIXIMAB, RECOMBINANT [Suspect]
     Indication: INFLAMMATORY BOWEL DISEASE
     Dosage: RECEIVED MORE THAN 3 DOSES OF INFLIXIMAB AS MAINTENANACE.
     Route: 042
  2. INFLIXIMAB, RECOMBINANT [Suspect]
     Indication: PYODERMA GANGRENOSUM
     Dosage: RECEIVED MORE THAN 3 DOSES OF INFLIXIMAB AS MAINTENANACE.
     Route: 042

REACTIONS (2)
  - Cardiac failure congestive [Unknown]
  - Atrial fibrillation [Unknown]
